FAERS Safety Report 6053855-1 (Version None)
Quarter: 2009Q1

REPORT INFORMATION
  Report Type: 
  Country: None (occurrence: None)
  Receive Date: 20090123
  Receipt Date: 20090108
  Transmission Date: 20090719
  Serious: Yes (Hospitalization)
  Sender: FDA-Public Use
  Company Number: 6048102

PATIENT
  Age: 94 Year
  Sex: Male

DRUGS (10)
  1. CIPROFLOXACIN HCL [Suspect]
     Indication: PNEUMONIA
     Dosage: 1000 MG (500 MG, 2 IN 1 D) ORAL
     Route: 048
     Dates: start: 20080710, end: 20080716
  2. LEVOTHYROXINE SODIUM [Suspect]
     Indication: HYPOTHYROIDISM
     Dosage: 25 MCG (25 MCG, 1 IN 1 D) ORAL
     Route: 048
     Dates: start: 20080630, end: 20080716
  3. ACETYLCYSTEINE [Suspect]
     Indication: PNEUMONIA
     Dosage: 600 MG (200 MG, 3 IN 1 D) ORAL
     Route: 048
     Dates: start: 20080710, end: 20080716
  4. ACETYLSALICYLIC ACID SRT [Suspect]
     Indication: CEREBROVASCULAR ACCIDENT PROPHYLAXIS
     Dosage: 100 MG (100 MG, 1 IN 1 D) ORAL
     Route: 048
     Dates: start: 20070601, end: 20080716
  5. ENALAPRIL MALEATE AND HYDROCHLOROTHIAZIDE [Suspect]
     Indication: CARDIAC FAILURE CHRONIC
     Dosage: 1 DOSAGE FORMS (1 DOSAGE FORMS, 1 IN 1 D) ORAL
     Route: 048
     Dates: start: 20070601, end: 20080716
  6. MICARDIS [Suspect]
     Indication: CORONARY ARTERY DISEASE
     Dosage: 40 MG (40 MG, 1 IN 1 D) ORAL
     Route: 048
     Dates: start: 20070901, end: 20080716
  7. FUROSEMIDE [Concomitant]
  8. MAGNESIUM OXIDE [Concomitant]
  9. RISPERDAL [Concomitant]
  10. TIOTROPIUM [Suspect]

REACTIONS (1)
  - DIARRHOEA [None]
